FAERS Safety Report 9536304 (Version 2)
Quarter: 2013Q3

REPORT INFORMATION
  Report Type: Spontaneous
  Country: US (occurrence: None)
  Receive Date: 20130507
  Receipt Date: 20130724
  Transmission Date: 20140515
  Serious: Yes (Disabling)
  Sender: FDA-Public Use
  Company Number: PHEH2013US000981

PATIENT
  Age: 58 Year
  Sex: Male
  Weight: 95.7 kg

DRUGS (1)
  1. AFINITOR (RAD) [Suspect]
     Indication: METASTATIC RENAL CELL CARCINOMA
     Route: 048
     Dates: start: 20121115, end: 20121231

REACTIONS (3)
  - Fatigue [None]
  - Rash [None]
  - Drug ineffective [None]
